FAERS Safety Report 17842095 (Version 15)
Quarter: 2021Q4

REPORT INFORMATION
  Report Type: Report from Study
  Country: CA (occurrence: CA)
  Receive Date: 20200529
  Receipt Date: 20211213
  Transmission Date: 20220304
  Serious: Yes (Hospitalization, Other)
  Sender: FDA-Public Use
  Company Number: PHHY2016CA140875

PATIENT
  Age: 52 Year
  Sex: Male
  Weight: 54.422 kg

DRUGS (7)
  1. SANDOSTATIN LAR DEPOT [Suspect]
     Active Substance: OCTREOTIDE ACETATE
     Indication: Carcinoid tumour
     Dosage: 30 MG, QMO (ONCE A MONTH)
     Route: 030
     Dates: start: 20150201
  2. SANDOSTATIN LAR DEPOT [Suspect]
     Active Substance: OCTREOTIDE ACETATE
     Indication: Neuroendocrine tumour
     Dosage: 30 MG, QMO (ONCE A MONTH)
     Route: 030
     Dates: start: 20170713
  3. SANDOSTATIN LAR DEPOT [Suspect]
     Active Substance: OCTREOTIDE ACETATE
     Dosage: 30 MG, QMO
     Route: 030
     Dates: start: 20190124
  4. SANDOSTATIN [Suspect]
     Active Substance: OCTREOTIDE ACETATE
     Indication: Carcinoid syndrome
     Dosage: UNK
     Route: 058
  5. SANDOSTATIN [Suspect]
     Active Substance: OCTREOTIDE ACETATE
     Indication: Neuroendocrine tumour
  6. SANDOSTATIN [Suspect]
     Active Substance: OCTREOTIDE ACETATE
  7. LEVOFLOXACIN [Concomitant]
     Active Substance: LEVOFLOXACIN
     Indication: Product used for unknown indication
     Dosage: 500 MG
     Route: 065
     Dates: end: 20210330

REACTIONS (17)
  - Inflammation [Unknown]
  - Chronic obstructive pulmonary disease [Unknown]
  - Movement disorder [Unknown]
  - Dyspnoea [Unknown]
  - Malaise [Unknown]
  - Neoplasm malignant [Recovering/Resolving]
  - Blood pressure systolic increased [Unknown]
  - Amnesia [Unknown]
  - Fatigue [Unknown]
  - Decubitus ulcer [Unknown]
  - Blood pressure increased [Unknown]
  - Peripheral swelling [Unknown]
  - Eye irritation [Unknown]
  - Weight decreased [Unknown]
  - Dizziness [Unknown]
  - Diarrhoea [Unknown]
  - Injection site haemorrhage [Unknown]

NARRATIVE: CASE EVENT DATE: 20161007
